FAERS Safety Report 25802836 (Version 2)
Quarter: 2025Q3

REPORT INFORMATION
  Report Type: Spontaneous
  Country: EU (occurrence: EU)
  Receive Date: 20250915
  Receipt Date: 20250929
  Transmission Date: 20251020
  Serious: Yes (Other)
  Sender: BAYER HEALTHCARE PHARMACEUTICALS INC.
  Company Number: EU-BAYER-2025A117355

PATIENT
  Age: 66 Year
  Sex: Male

DRUGS (19)
  1. NUBEQA [Suspect]
     Active Substance: DAROLUTAMIDE
     Indication: Hormone-dependent prostate cancer
  2. DOCETAXEL [Suspect]
     Active Substance: DOCETAXEL
     Indication: Hormone-dependent prostate cancer
  3. DOCETAXEL [Suspect]
     Active Substance: DOCETAXEL
     Indication: Hormone-dependent prostate cancer
  4. DOCETAXEL [Suspect]
     Active Substance: DOCETAXEL
     Indication: Hormone-dependent prostate cancer
  5. DOCETAXEL [Suspect]
     Active Substance: DOCETAXEL
     Indication: Hormone-dependent prostate cancer
  6. DOCETAXEL [Suspect]
     Active Substance: DOCETAXEL
     Indication: Hormone-dependent prostate cancer
  7. DOCETAXEL [Suspect]
     Active Substance: DOCETAXEL
     Indication: Hormone-dependent prostate cancer
     Dates: end: 202505
  8. RELUGOLIX [Concomitant]
     Active Substance: RELUGOLIX
  9. ENALAPRIL [Concomitant]
     Active Substance: ENALAPRIL
     Indication: Hypertension
  10. GLYCOPYRRONIUM\INDACATEROL [Concomitant]
     Active Substance: GLYCOPYRRONIUM\INDACATEROL
     Indication: Chronic obstructive pulmonary disease
  11. VENLAFAXINE [Concomitant]
     Active Substance: VENLAFAXINE HYDROCHLORIDE
     Indication: Depression
     Dosage: 300 MG, QD
  12. QUETIAPINE [Concomitant]
     Active Substance: QUETIAPINE
     Indication: Depression
  13. LORAZEPAM [Concomitant]
     Active Substance: LORAZEPAM
     Indication: Depression
     Dosage: 1 MG, TID
  14. METAMIZOLE [Concomitant]
     Active Substance: METAMIZOLE
     Indication: Bone pain
  15. GABAPENTIN [Concomitant]
     Active Substance: GABAPENTIN
     Indication: Bone pain
  16. GABAPENTIN [Concomitant]
     Active Substance: GABAPENTIN
     Indication: Neuralgia
  17. SOFOSBUVIR AND VELPATASVIR [Concomitant]
     Active Substance: SOFOSBUVIR\VELPATASVIR
     Indication: Chronic hepatitis C
  18. OMEPRAZOLE [Concomitant]
     Active Substance: OMEPRAZOLE
  19. CALCIUM\VITAMIN D [Concomitant]
     Active Substance: CALCIUM\VITAMIN D

REACTIONS (3)
  - Neuropathy peripheral [None]
  - Bone pain [Recovering/Resolving]
  - Asthenia [None]
